FAERS Safety Report 4844980-9 (Version None)
Quarter: 2005Q4

REPORT INFORMATION
  Report Type: 
  Country: None (occurrence: None)
  Receive Date: 20051205
  Receipt Date: 20051006
  Transmission Date: 20060501
  Serious: Yes (Death, Hospitalization)
  Sender: FDA-Public Use
  Company Number: US-MERCK-0510USA05786

PATIENT
  Age: 62 Year
  Sex: Male
  Weight: 78 kg

DRUGS (12)
  1. VIOXX [Suspect]
     Indication: PAIN IN EXTREMITY
     Route: 048
     Dates: start: 20010425, end: 20030731
  2. VIOXX [Suspect]
     Route: 048
  3. VIOXX [Suspect]
     Route: 048
     Dates: start: 20031022, end: 20040531
  4. VIOXX [Suspect]
     Route: 048
     Dates: start: 20031022, end: 20040531
  5. VIOXX [Suspect]
     Route: 048
  6. VIOXX [Suspect]
     Route: 048
     Dates: start: 20010425, end: 20030731
  7. VIOXX [Suspect]
     Indication: ARTHRALGIA
     Route: 048
     Dates: start: 20010425, end: 20030731
  8. VIOXX [Suspect]
     Route: 048
  9. VIOXX [Suspect]
     Route: 048
     Dates: start: 20031022, end: 20040531
  10. VIOXX [Suspect]
     Route: 048
     Dates: start: 20031022, end: 20040531
  11. VIOXX [Suspect]
     Route: 048
  12. VIOXX [Suspect]
     Route: 048
     Dates: start: 20010425, end: 20030731

REACTIONS (13)
  - ANGINA PECTORIS [None]
  - ARTERIOSCLEROSIS [None]
  - CARDIAC DISORDER [None]
  - CHEST PAIN [None]
  - CORONARY ARTERY DISEASE [None]
  - DEAFNESS UNILATERAL [None]
  - DIZZINESS [None]
  - HAEMATOCHEZIA [None]
  - HIATUS HERNIA [None]
  - HYPERLIPIDAEMIA [None]
  - HYPERTENSION [None]
  - SLEEP DISORDER [None]
  - TRANSIENT ISCHAEMIC ATTACK [None]
